FAERS Safety Report 16903908 (Version 3)
Quarter: 2019Q4

REPORT INFORMATION
  Report Type: Report from Study
  Country: US (occurrence: US)
  Receive Date: 20191010
  Receipt Date: 20191122
  Transmission Date: 20200122
  Serious: Yes (Hospitalization)
  Sender: FDA-Public Use
  Company Number: US-TAIHO ONCOLOGY  INC-EU-2019-03291

PATIENT
  Sex: Male
  Weight: 105.28 kg

DRUGS (1)
  1. LONSURF [Suspect]
     Active Substance: TIPIRACIL HYDROCHLORIDE\TRIFLURIDINE
     Indication: RECTAL CANCER
     Dosage: CURRENT CYCLE 2.?FORM STRENGTH: 15MG AND 20MG
     Route: 048
     Dates: start: 20190723, end: 20191114

REACTIONS (2)
  - Intestinal operation [Unknown]
  - Disease progression [Unknown]

NARRATIVE: CASE EVENT DATE: 2019
